FAERS Safety Report 9472165 (Version 1)
Quarter: 2013Q3

REPORT INFORMATION
  Report Type: Spontaneous
  Country: US (occurrence: US)
  Receive Date: 20130823
  Receipt Date: 20130823
  Transmission Date: 20140515
  Serious: Yes (Other)
  Sender: FDA-Public Use
  Company Number: US-PERRIGO-13US008497

PATIENT
  Age: 19 Year
  Sex: Male
  Weight: 63.49 kg

DRUGS (1)
  1. IBUPROFEN 200MG-DIPHENHYDRAMINE CITRATE 38 MG 8K7 [Suspect]
     Indication: PRODUCT USED FOR UNKNOWN INDICATION
     Dosage: 14 TABLETS, SINGLE
     Route: 048
     Dates: start: 20130813, end: 20130813

REACTIONS (2)
  - Overdose [Unknown]
  - Somnolence [Unknown]
